FAERS Safety Report 7416526-2 (Version None)
Quarter: 2011Q2

REPORT INFORMATION
  Report Type: 
  Country: None (occurrence: None)
  Receive Date: 20110414
  Receipt Date: 20110407
  Transmission Date: 20111010
  Serious: Yes (Other)
  Sender: FDA-Public Use
  Company Number: JP-BRISTOL-MYERS SQUIBB COMPANY-15663354

PATIENT
  Age: 54 Year
  Sex: Female
  Weight: 74 kg

DRUGS (5)
  1. ZANTAC [Concomitant]
  2. TAKEPRON [Concomitant]
  3. TAXOL [Suspect]
     Indication: BREAST CANCER
     Dosage: 1 DF = 130MGX30
     Route: 041
     Dates: start: 20100415, end: 20101203
  4. KYTRIL [Concomitant]
  5. DECADRON [Concomitant]

REACTIONS (3)
  - SWELLING [None]
  - ERYTHEMA [None]
  - SCLERODERMA [None]
